FAERS Safety Report 17208425 (Version 1)
Quarter: 2019Q4

REPORT INFORMATION
  Report Type: Spontaneous
  Country: IT (occurrence: IT)
  Receive Date: 20191227
  Receipt Date: 20191227
  Transmission Date: 20200122
  Serious: Yes (Hospitalization)
  Sender: FDA-Public Use
  Company Number: IT-MYLANLABS-2019M1127547

PATIENT
  Age: 77 Year
  Sex: Female

DRUGS (1)
  1. CASPOFUNGIN [Suspect]
     Active Substance: CASPOFUNGIN
     Indication: SYSTEMIC MYCOSIS
     Dosage: 70 MILLIGRAM, QD
     Route: 042

REACTIONS (2)
  - Inflammation [Unknown]
  - Drug ineffective [Unknown]
